FAERS Safety Report 11643753 (Version 1)
Quarter: 2015Q4

REPORT INFORMATION
  Report Type: Report from Study
  Country: US (occurrence: US)
  Receive Date: 20151020
  Receipt Date: 20151020
  Transmission Date: 20160304
  Serious: Yes (Hospitalization)
  Sender: FDA-Public Use
  Company Number: US-BIOGENIDEC-2015BI140978

PATIENT
  Age: 47 Year
  Sex: Male

DRUGS (1)
  1. TYSABRI [Suspect]
     Active Substance: NATALIZUMAB
     Indication: MULTIPLE SCLEROSIS
     Route: 042
     Dates: start: 20151008

REACTIONS (6)
  - Influenza like illness [Recovered/Resolved]
  - Thrombosis [Not Recovered/Not Resolved]
  - Fatigue [Recovered/Resolved]
  - Pulmonary thrombosis [Not Recovered/Not Resolved]
  - Thinking abnormal [Recovered/Resolved]
  - Depression [Recovered/Resolved]

NARRATIVE: CASE EVENT DATE: 20151008
